FAERS Safety Report 9757284 (Version 2)
Quarter: 2013Q4

REPORT INFORMATION
  Report Type: Report from Study
  Country: US (occurrence: US)
  Receive Date: 20131213
  Receipt Date: 20131230
  Transmission Date: 20140711
  Serious: Yes (Hospitalization, Other)
  Sender: FDA-Public Use
  Company Number: US-ABBVIE-13P-163-1176834-00

PATIENT
  Age: 48 Year
  Sex: Male
  Weight: 130.75 kg

DRUGS (18)
  1. HUMIRA [Suspect]
     Indication: CROHN^S DISEASE
     Route: 058
     Dates: start: 20130822, end: 20130822
  2. HUMIRA [Suspect]
     Route: 058
     Dates: start: 20130905, end: 20130905
  3. HUMIRA [Suspect]
     Route: 058
     Dates: start: 20130919
  4. UNKNOWN GOUT MEDICATION [Concomitant]
     Indication: GOUT
     Route: 048
  5. HYDROCODONE [Concomitant]
     Indication: PAIN
     Route: 048
  6. ALLOPURINOL [Concomitant]
     Indication: GOUT
  7. ENDOMETHACIN [Concomitant]
     Indication: GOUT
     Dosage: ONCE A DAY AS NEEDED
  8. COLCRYS [Concomitant]
  9. XANAX [Concomitant]
     Indication: PRODUCT USED FOR UNKNOWN INDICATION
     Dosage: TWICE A DAY AS NEEDED
  10. NEXIUM [Concomitant]
     Indication: PRODUCT USED FOR UNKNOWN INDICATION
  11. LIPITOR [Concomitant]
     Indication: BLOOD CHOLESTEROL INCREASED
     Route: 048
  12. METHOCARBAMOL [Concomitant]
     Indication: PRODUCT USED FOR UNKNOWN INDICATION
     Dosage: 1 EVERY 8 HOURS AS NEEDED
  13. CIPRO [Concomitant]
     Indication: PRODUCT USED FOR UNKNOWN INDICATION
  14. ENTOCORT [Concomitant]
     Indication: CROHN^S DISEASE
  15. IMURAN [Concomitant]
     Indication: CROHN^S DISEASE
  16. FLAGYL [Concomitant]
     Indication: PRODUCT USED FOR UNKNOWN INDICATION
  17. VIT D3 [Concomitant]
     Indication: VITAMIN D DEFICIENCY
  18. WELCHOL [Concomitant]
     Indication: BLOOD CHOLESTEROL INCREASED

REACTIONS (2)
  - Coronary artery occlusion [Recovering/Resolving]
  - Chest pain [Recovered/Resolved]
